FAERS Safety Report 16680793 (Version 1)
Quarter: 2019Q3

REPORT INFORMATION
  Report Type: Other
  Country: IT (occurrence: IT)
  Receive Date: 20190808
  Receipt Date: 20190808
  Transmission Date: 20191004
  Serious: Yes (Hospitalization)
  Sender: FDA-Public Use
  Company Number: IT-CELLTRION INC.-2019IT023531

PATIENT

DRUGS (18)
  1. NORVASC [Concomitant]
     Active Substance: AMLODIPINE BESYLATE
     Dosage: 10 MG
     Route: 048
  2. LEXOTAN [Concomitant]
     Active Substance: BROMAZEPAM
     Dosage: 15 DROP
     Route: 048
  3. RYTMONORM [Concomitant]
     Active Substance: PROPAFENONE
     Dosage: 325 MG
     Route: 048
  4. METFORMIN [Concomitant]
     Active Substance: METFORMIN HYDROCHLORIDE
     Dosage: 1000 MG
     Route: 048
  5. DERIL [ALFACALCIDOL] [Concomitant]
     Dosage: 1 MICROGRAM
     Route: 048
  6. SALAZOPYRIN EN [Concomitant]
     Active Substance: SULFASALAZINE
     Dosage: 2 GRAM
     Route: 048
  7. MEDROL [Concomitant]
     Active Substance: METHYLPREDNISOLONE
     Dosage: 64 MG
     Route: 048
  8. VERTISERC [Concomitant]
     Active Substance: BETAHISTINE HYDROCHLORIDE
     Dosage: 32 MG
     Route: 048
  9. CLEXANE [Concomitant]
     Active Substance: ENOXAPARIN SODIUM
     Dosage: 6 K[IU]
     Route: 058
  10. TRIMETON [Concomitant]
     Active Substance: CHLORPHENIRAMINE MALEATE
     Dosage: 10 MG
     Route: 042
     Dates: start: 20190716, end: 20190716
  11. CREON [Concomitant]
     Active Substance: PANCRELIPASE AMYLASE\PANCRELIPASE LIPASE\PANCRELIPASE PROTEASE
     Dosage: 18 DF
     Route: 048
  12. TRUXIMA [Suspect]
     Active Substance: RITUXIMAB-ABBS
     Indication: RHEUMATOID ARTHRITIS
     Dosage: 1 G PER 1 CYCLE
     Route: 042
     Dates: start: 20190702, end: 20190716
  13. TACHIPIRINA [Concomitant]
     Active Substance: ACETAMINOPHEN
     Dosage: 1 G
     Route: 048
     Dates: start: 20190716, end: 20190716
  14. PROLIA [Concomitant]
     Active Substance: DENOSUMAB
     Dosage: 60 MG
     Route: 058
  15. BENTELAN [Concomitant]
     Active Substance: BETAMETHASONE SODIUM PHOSPHATE
     Dosage: 16 MG
     Route: 042
     Dates: start: 20190716, end: 20190716
  16. COTAREG [Concomitant]
     Active Substance: HYDROCHLOROTHIAZIDE\VALSARTAN
     Dosage: 325.3 MG
     Route: 048
  17. PEPTAZOL [LANSOPRAZOLE] [Concomitant]
     Active Substance: LANSOPRAZOLE
     Dosage: 40 MG
     Route: 048
  18. METOCAL VITAMINA D3 [Concomitant]
     Dosage: 1 DF
     Route: 048

REACTIONS (5)
  - Abdominal pain [Recovering/Resolving]
  - Malaise [Recovering/Resolving]
  - Asthenia [Recovering/Resolving]
  - Syncope [Recovering/Resolving]
  - Diarrhoea [Recovering/Resolving]

NARRATIVE: CASE EVENT DATE: 20190716
